FAERS Safety Report 8919469 (Version 1)
Quarter: 2012Q4

REPORT INFORMATION
  Report Type: Spontaneous
  Country: FR (occurrence: None)
  Receive Date: 20121114
  Receipt Date: 20121114
  Transmission Date: 20130627
  Serious: Yes (Hospitalization)
  Sender: FDA-Public Use
  Company Number: 2012-19266

PATIENT
  Age: 60 Year
  Sex: Male

DRUGS (10)
  1. OMEPRAZOLE (UNKNOWN) [Suspect]
     Dates: start: 200709
  2. PANTOPRAZOLE SODIUM [Suspect]
     Dates: start: 200709
  3. SUCRALFATE (SUCRALFATE) [Concomitant]
  4. OXAZEPAM (OXAZEPAM) [Concomitant]
  5. CLOBAZAM (CLOBAZAM) [Concomitant]
  6. ENOXAPARIN (ENOXAPARIN) [Concomitant]
  7. ASPIRIN (ACETYLSALICYLIC ACID) [Concomitant]
  8. VITAMIN K  /00032401/ (PHYTOMENADIONE) [Concomitant]
  9. PYRIDOXINE (PYRIDOXINE) [Concomitant]
  10. THIAMINE (THIAMINE) [Concomitant]

REACTIONS (5)
  - Neutropenia [None]
  - White blood cell count decreased [None]
  - Dehydration [None]
  - Malnutrition [None]
  - Haemoglobin decreased [None]
